FAERS Safety Report 24933670 (Version 1)
Quarter: 2025Q1

REPORT INFORMATION
  Report Type: Spontaneous
  Country: US (occurrence: US)
  Receive Date: 20250206
  Receipt Date: 20250206
  Transmission Date: 20250409
  Serious: No
  Sender: Kenvue
  Company Number: US-KENVUE-20250104535

PATIENT
  Age: 58 Year
  Sex: Male

DRUGS (2)
  1. MENS ROGAINE EXTRA STRENGTH [Suspect]
     Active Substance: MINOXIDIL
     Indication: Product used for unknown indication
     Dosage: 1 MILLILITER, TWICE A DAY
     Route: 061
     Dates: start: 20250107
  2. MENS ROGAINE EXTRA STRENGTH [Suspect]
     Active Substance: MINOXIDIL
     Dosage: 1 MILLILITER, ONCE A DAY
     Route: 061
     Dates: start: 20250108

REACTIONS (5)
  - Application site rash [Unknown]
  - Application site pain [Unknown]
  - Application site erythema [Unknown]
  - Application site pruritus [Unknown]
  - Inappropriate schedule of product administration [Unknown]

NARRATIVE: CASE EVENT DATE: 20250101
